FAERS Safety Report 11005549 (Version 2)
Quarter: 2015Q2

REPORT INFORMATION
  Report Type: Spontaneous
  Country: US (occurrence: US)
  Receive Date: 20150409
  Receipt Date: 20150626
  Transmission Date: 20150821
  Serious: No
  Sender: FDA-Public Use
  Company Number: US-GLAXOSMITHKLINE-US2015GSK025913

PATIENT
  Sex: Female

DRUGS (1)
  1. SUMATRIPTAN SOLUTION FOR INJECTION [Suspect]
     Active Substance: SUMATRIPTAN
     Indication: MIGRAINE
     Dosage: UNK, U

REACTIONS (2)
  - Drug ineffective [Unknown]
  - Product quality issue [Unknown]
